FAERS Safety Report 5705058-5 (Version None)
Quarter: 2008Q2

REPORT INFORMATION
  Report Type: 
  Country: None (occurrence: None)
  Receive Date: 20080410
  Receipt Date: 20080327
  Transmission Date: 20081010
  Serious: No
  Sender: FDA-Public Use
  Company Number: 232497J08USA

PATIENT
  Age: 51 Year
  Sex: Male
  Weight: 127.0072 kg

DRUGS (3)
  1. REBIF [Suspect]
     Indication: OFF LABEL USE
     Dosage: 44 MCG, 3 IN 1 WEEKS, SUBCUTANEOUS
     Route: 058
     Dates: start: 20070723
  2. MAXIDE (DYAZIDE) [Concomitant]
  3. HEPARIN TROCHES (HEPARIN) [Concomitant]

REACTIONS (2)
  - BARTONELLOSIS [None]
  - LYME DISEASE [None]
